FAERS Safety Report 21844825 (Version 2)
Quarter: 2023Q1

REPORT INFORMATION
  Report Type: Spontaneous
  Country: US (occurrence: US)
  Receive Date: 20230110
  Receipt Date: 20230322
  Transmission Date: 20230418
  Serious: No
  Sender: FDA-Public Use
  Company Number: US-LUNDBECK-DKLU3056137

PATIENT
  Age: 5 Month
  Sex: Male
  Weight: 11.5 kg

DRUGS (3)
  1. SABRIL [Suspect]
     Active Substance: VIGABATRIN
     Indication: Infantile spasms
     Dosage: DAYS 1-3
     Route: 065
     Dates: start: 20221210
  2. SABRIL [Suspect]
     Active Substance: VIGABATRIN
     Dosage: DAYS 4-6
     Route: 065
  3. SABRIL [Suspect]
     Active Substance: VIGABATRIN
     Dosage: DAYS 7 AND BEYOND
     Route: 048
     Dates: start: 202212

REACTIONS (2)
  - Hypersomnia [Recovered/Resolved]
  - Somnolence [Recovered/Resolved]

NARRATIVE: CASE EVENT DATE: 20221213
